FAERS Safety Report 8963074 (Version 2)
Quarter: 2012Q4

REPORT INFORMATION
  Report Type: 
  Country: NZ (occurrence: NZ)
  Receive Date: 20121213
  Receipt Date: 20121220
  Transmission Date: 20130627
  Serious: Yes (Hospitalization, Disabling, Other)
  Sender: FDA-Public Use
  Company Number: NZ-JNJFOC-20121201083

PATIENT
  Age: 67 Year
  Sex: Female
  Weight: 77 kg

DRUGS (14)
  1. REMICADE [Suspect]
     Indication: CROHN^S DISEASE
     Route: 042
     Dates: start: 20111129
  2. REMICADE [Suspect]
     Indication: CROHN^S DISEASE
     Route: 042
     Dates: start: 20121008
  3. REMICADE [Suspect]
     Indication: CROHN^S DISEASE
     Route: 042
     Dates: start: 20121012
  4. OMEPRAZOLE [Concomitant]
     Route: 065
  5. AZATHIOPRINE [Concomitant]
     Route: 048
  6. FERROGRAD [Concomitant]
     Route: 048
  7. METFORMIN 500 [Concomitant]
     Dosage: mane
     Route: 048
  8. SIMVASTATIN [Concomitant]
     Dosage: nocte
     Route: 048
  9. VERAPAMIL [Concomitant]
     Dosage: SR
     Route: 048
  10. CILAZAPRIL [Concomitant]
     Route: 048
  11. MODURETIC [Concomitant]
     Route: 065
  12. ASPIRIN [Concomitant]
     Dosage: EC
     Route: 048
  13. LAXSOL [Concomitant]
     Route: 048
  14. URAL [Concomitant]
     Route: 048

REACTIONS (2)
  - Acute myocardial infarction [Recovered/Resolved]
  - Neuropathy peripheral [Recovering/Resolving]
